FAERS Safety Report 6535501-3 (Version None)
Quarter: 2010Q1

REPORT INFORMATION
  Report Type: 
  Country: None (occurrence: None)
  Receive Date: 20100111
  Receipt Date: 20100111
  Transmission Date: 20100710
  Serious: Yes (Hospitalization)
  Sender: FDA-Public Use
  Company Number: None

PATIENT
  Age: 74 Year
  Sex: Female
  Weight: 64.8644 kg

DRUGS (1)
  1. MULTAQ [Suspect]
     Indication: ATRIAL FIBRILLATION
     Dosage: 400MG PO BID PO
     Route: 048
     Dates: start: 20091113

REACTIONS (4)
  - ARTHRALGIA [None]
  - ASTHENIA [None]
  - FALL [None]
  - GROIN PAIN [None]
